FAERS Safety Report 9981646 (Version 1)
Quarter: 2014Q1

REPORT INFORMATION
  Report Type: Report from Study
  Country: PR (occurrence: PR)
  Receive Date: 20140307
  Receipt Date: 20140307
  Transmission Date: 20141002
  Serious: No
  Sender: FDA-Public Use
  Company Number: PR-ABBVIE-13P-131-1179923-00

PATIENT
  Sex: Male
  Weight: 77.18 kg

DRUGS (5)
  1. HUMIRA [Suspect]
     Indication: PSORIASIS
     Route: 058
     Dates: start: 201310, end: 201401
  2. CLONIDINE [Concomitant]
     Indication: HYPERTENSION
     Route: 048
  3. METOPROLOL [Concomitant]
     Indication: HYPERTENSION
     Route: 048
  4. DERMOVATE UNGUENT [Concomitant]
     Indication: PSORIASIS
     Dosage: 1 APPLICATION
     Route: 061
  5. CATAFLAM [Concomitant]
     Indication: PAIN
     Route: 048

REACTIONS (4)
  - Drug ineffective [Unknown]
  - Bone pain [Recovered/Resolved]
  - Arthralgia [Recovered/Resolved]
  - Psoriasis [Recovering/Resolving]
